FAERS Safety Report 9605923 (Version 2)
Quarter: 2013Q4

REPORT INFORMATION
  Report Type: Report from Study
  Country: BR (occurrence: BR)
  Receive Date: 20131008
  Receipt Date: 20131031
  Transmission Date: 20140711
  Serious: Yes (Hospitalization)
  Sender: FDA-Public Use
  Company Number: BR-ABBVIE-13P-020-1155057-00

PATIENT
  Sex: Female
  Weight: 60 kg

DRUGS (8)
  1. HUMIRA [Suspect]
     Indication: RHEUMATOID ARTHRITIS
  2. HUMIRA [Suspect]
     Route: 058
     Dates: start: 201307
  3. ARAVA [Concomitant]
     Indication: PSORIASIS
  4. ARAVA [Concomitant]
     Indication: PSORIATIC ARTHROPATHY
  5. ARAVA [Concomitant]
     Indication: SJOGREN^S SYNDROME
  6. METHOTREXATE [Concomitant]
     Indication: PSORIASIS
  7. METHOTREXATE [Concomitant]
     Indication: PSORIATIC ARTHROPATHY
  8. METHOTREXATE [Concomitant]
     Indication: SJOGREN^S SYNDROME

REACTIONS (7)
  - Oedema mouth [Not Recovered/Not Resolved]
  - Salivary gland pain [Recovering/Resolving]
  - Parotid gland inflammation [Recovering/Resolving]
  - Parotitis [Unknown]
  - Weight decreased [Unknown]
  - Sjogren^s syndrome [Unknown]
  - Amylase abnormal [Unknown]
